FAERS Safety Report 9954575 (Version 1)
Quarter: 2014Q1

REPORT INFORMATION
  Report Type: Spontaneous
  Country: US (occurrence: US)
  Receive Date: 20140304
  Receipt Date: 20140304
  Transmission Date: 20141002
  Serious: No
  Sender: FDA-Public Use
  Company Number: US-ABBVIE-13P-163-1082577-00

PATIENT
  Age: 72 Year
  Sex: Female
  Weight: 53.57 kg

DRUGS (5)
  1. HUMIRA [Suspect]
     Indication: PSORIATIC ARTHROPATHY
     Dates: start: 201208
  2. SYNTHROID [Concomitant]
     Indication: THYROID DISORDER
  3. ASPIRIN [Concomitant]
     Indication: CARDIAC DISORDER
  4. LISINOPRIL [Concomitant]
     Indication: CARDIAC DISORDER
  5. CELEBREX [Concomitant]
     Indication: PSORIATIC ARTHROPATHY

REACTIONS (5)
  - Medication error [Unknown]
  - Incorrect route of drug administration [Recovered/Resolved]
  - Injection site haemorrhage [Recovered/Resolved]
  - Injection site bruising [Recovered/Resolved]
  - Injection site swelling [Recovering/Resolving]
